FAERS Safety Report 8990001 (Version 1)
Quarter: 2012Q4

REPORT INFORMATION
  Report Type: 
  Country: JP (occurrence: JP)
  Receive Date: 20121228
  Receipt Date: 20121228
  Transmission Date: 20130627
  Serious: Yes (Other)
  Sender: FDA-Public Use
  Company Number: JP-ASTRAZENECA-2012SE95589

PATIENT
  Age: 30 Year
  Sex: Female

DRUGS (2)
  1. DIPRIVAN [Suspect]
     Indication: HERNIA REPAIR
     Route: 042
  2. HYPNOTICS AND SEDATIVES, ANTIANXIETICS [Concomitant]
     Dosage: Dose unknown
     Route: 048

REACTIONS (1)
  - Convulsion [Unknown]
